FAERS Safety Report 14891368 (Version 1)
Quarter: 2018Q2

REPORT INFORMATION
  Report Type: Spontaneous
  Country: US (occurrence: US)
  Receive Date: 20180514
  Receipt Date: 20180514
  Transmission Date: 20180711
  Serious: No
  Sender: FDA-Public Use
  Company Number: US-UNITED THERAPEUTICS-UNT-2017-018143

PATIENT
  Age: 63 Year
  Sex: Male
  Weight: 116.55 kg

DRUGS (2)
  1. REMODULIN [Suspect]
     Active Substance: TREPROSTINIL
     Indication: PULMONARY ARTERIAL HYPERTENSION
     Dosage: 0.064 ?G/KG, CONTINUING
     Route: 058
     Dates: start: 20161222
  2. REMODULIN [Suspect]
     Active Substance: TREPROSTINIL
     Dosage: RATE OF 0.038 ML/HR
     Route: 058
     Dates: start: 201712

REACTIONS (8)
  - Headache [Not Recovered/Not Resolved]
  - Diarrhoea [Unknown]
  - Crying [Unknown]
  - Nausea [Not Recovered/Not Resolved]
  - Vomiting [Unknown]
  - Infusion site pain [Not Recovered/Not Resolved]
  - Oedema [Unknown]
  - Retching [Unknown]

NARRATIVE: CASE EVENT DATE: 201712
